FAERS Safety Report 6788240-8 (Version None)
Quarter: 2010Q2

REPORT INFORMATION
  Report Type: 
  Country: None (occurrence: None)
  Receive Date: 20100623
  Receipt Date: 20080225
  Transmission Date: 20101027
  Serious: Yes (Other)
  Sender: FDA-Public Use
  Company Number: US-PFIZER INC-2008003919

PATIENT
  Sex: Male
  Weight: 74.8 kg

DRUGS (10)
  1. GEODON [Suspect]
     Indication: ANGER
     Route: 048
     Dates: end: 20080110
  2. GEODON [Suspect]
     Indication: POST-TRAUMATIC STRESS DISORDER
  3. GEODON [Suspect]
     Indication: ATTENTION DEFICIT/HYPERACTIVITY DISORDER
  4. GEODON [Suspect]
     Indication: OPPOSITIONAL DEFIANT DISORDER
  5. GEODON [Suspect]
     Indication: BIPOLAR DISORDER
  6. LIPITOR [Concomitant]
  7. NEURONTIN [Concomitant]
  8. BENADRYL [Concomitant]
     Dates: start: 20080110
  9. ADDERALL XR 10 [Concomitant]
  10. PROVENTIL GENTLEHALER [Concomitant]

REACTIONS (8)
  - CHEST PAIN [None]
  - DYSPNOEA [None]
  - EXTRAPYRAMIDAL DISORDER [None]
  - FLUSHING [None]
  - MOOD SWINGS [None]
  - MUSCLE SPASMS [None]
  - NAUSEA [None]
  - OVERDOSE [None]
